FAERS Safety Report 9322828 (Version 1)
Quarter: 2013Q2

REPORT INFORMATION
  Report Type: Report from Study
  Country: HU (occurrence: HU)
  Receive Date: 20130602
  Receipt Date: 20130602
  Transmission Date: 20140414
  Serious: Yes (Hospitalization, Other)
  Sender: FDA-Public Use
  Company Number: HU-BRISTOL-MYERS SQUIBB COMPANY-18723106

PATIENT
  Age: 60 Year
  Sex: Female

DRUGS (4)
  1. BLINDED: IPILIMUMAB [Suspect]
     Indication: SMALL CELL LUNG CANCER
     Dosage: 13-MAR-2013 (3 COURSES)
     Route: 042
     Dates: start: 20130220
  2. CISPLATIN [Suspect]
     Indication: SMALL CELL LUNG CANCER
     Dosage: 07-JAN-2013, 28-JAN-2013, 18-FEB-2013 + 11-MAR-2013
     Dates: start: 20130107
  3. ETOPOSIDE [Suspect]
     Indication: SMALL CELL LUNG CANCER
     Dosage: 07-JAN-2013, 28-JAN-2013, 18-FEB-2013 + 11-MAR-2013
     Dates: start: 20130107
  4. BLINDED: PLACEBO [Suspect]
     Indication: SMALL CELL LUNG CANCER
     Route: 042
     Dates: start: 20130220

REACTIONS (1)
  - Thrombosis [Recovered/Resolved]
